FAERS Safety Report 8338276-0 (Version None)
Quarter: 2012Q2

REPORT INFORMATION
  Report Type: 
  Country: None (occurrence: None)
  Receive Date: 20120504
  Receipt Date: 20120425
  Transmission Date: 20120825
  Serious: Yes (Other)
  Sender: FDA-Public Use
  Company Number: FR-MERCK-1204USA04259

PATIENT
  Age: 67 Year
  Sex: Male

DRUGS (12)
  1. MOLSIDOMINE [Suspect]
     Route: 048
     Dates: start: 20120301
  2. PANTOPRAZOLE SODIUM [Suspect]
     Route: 048
     Dates: start: 20040101, end: 20120307
  3. PREVISCAN [Suspect]
     Indication: ATRIAL FIBRILLATION
     Route: 048
     Dates: start: 20040101
  4. VASTAREL [Suspect]
     Indication: CONGESTIVE CARDIOMYOPATHY
     Route: 065
     Dates: start: 20040101, end: 20120307
  5. MOLSIDOMINE [Suspect]
     Indication: CONGESTIVE CARDIOMYOPATHY
     Route: 048
     Dates: start: 20040101
  6. CRESTOR [Suspect]
     Indication: DYSLIPIDAEMIA
     Route: 048
     Dates: start: 20040101
  7. AMLODIPINE BESYLATE [Suspect]
     Indication: HYPERTENSION
     Route: 048
     Dates: start: 20040101
  8. IKOREL [Suspect]
     Indication: CONGESTIVE CARDIOMYOPATHY
     Route: 048
     Dates: start: 20040101
  9. VALSARTAN [Suspect]
     Indication: HYPERTENSION
     Route: 048
     Dates: start: 20040101
  10. ZETIA [Suspect]
     Indication: DYSLIPIDAEMIA
     Route: 048
     Dates: start: 20040101
  11. CARDEGIC [Suspect]
     Indication: CONGESTIVE CARDIOMYOPATHY
     Route: 048
     Dates: start: 20040101, end: 20120307
  12. BISOPROLOL FUMARATE [Suspect]
     Indication: CONGESTIVE CARDIOMYOPATHY
     Route: 048
     Dates: start: 20040101

REACTIONS (1)
  - HYPERHIDROSIS [None]
